FAERS Safety Report 8044337-6 (Version None)
Quarter: 2012Q1

REPORT INFORMATION
  Report Type: 
  Country: None (occurrence: None)
  Receive Date: 20120111
  Receipt Date: 20120111
  Transmission Date: 20120608
  Serious: Yes (Death)
  Sender: FDA-Public Use
  Company Number: None

PATIENT
  Age: 77 Year
  Sex: Male

DRUGS (8)
  1. NPH INSULIN [Concomitant]
  2. HYDRALAZINE HCL [Concomitant]
  3. ZOCOR [Concomitant]
  4. LASIX [Concomitant]
  5. METOPROLOL [Concomitant]
  6. LETAIRIS [Suspect]
     Indication: PULMONARY HYPERTENSION
     Dosage: 5MG DAILY ORALLY
     Route: 048
     Dates: start: 20111201
  7. OMEPRAZOLE [Concomitant]
  8. REVATIO [Concomitant]

REACTIONS (1)
  - RESPIRATORY FAILURE [None]
